FAERS Safety Report 4524581-2 (Version None)
Quarter: 2004Q4

REPORT INFORMATION
  Report Type: 
  Country: None (occurrence: None)
  Receive Date: 20041117
  Receipt Date: 20040629
  Transmission Date: 20050328
  Serious: Yes (Life-Threatening, Hospitalization)
  Sender: FDA-Public Use
  Company Number: US-JNJFOC-20040704919

PATIENT
  Sex: Female

DRUGS (9)
  1. LEVOFLOXACIN [Suspect]
     Indication: DRUG USE FOR UNKNOWN INDICATION
     Dosage: 500 MG, 1 IN 1 DAY, ORAL
     Route: 048
     Dates: start: 20011008, end: 20011012
  2. DOFETILIDE (DOFETILIDE) [Suspect]
     Indication: DRUG USE FOR UNKNOWN INDICATION
     Dosage: 0.25 MG, 2 IN 1 DAY, ORAL
     Route: 048
     Dates: start: 19960401, end: 20011014
  3. CARDIZEM [Concomitant]
  4. COUMADIN [Concomitant]
  5. DYAZIDE [Concomitant]
  6. K-DUR 10 [Concomitant]
  7. LIPITOR [Concomitant]
  8. MAGOX (MAGNESIUM OXIDE) [Concomitant]
  9. TOPROL-XL [Concomitant]

REACTIONS (8)
  - ALANINE AMINOTRANSFERASE INCREASED [None]
  - ASPARTATE AMINOTRANSFERASE INCREASED [None]
  - BLOOD POTASSIUM INCREASED [None]
  - DYSPNOEA [None]
  - INTERNATIONAL NORMALISED RATIO INCREASED [None]
  - RENAL IMPAIRMENT [None]
  - TORSADE DE POINTES [None]
  - VENTRICULAR FIBRILLATION [None]
